FAERS Safety Report 12168317 (Version 1)
Quarter: 2016Q1

REPORT INFORMATION
  Report Type: Spontaneous
  Country: US (occurrence: None)
  Receive Date: 20160309
  Receipt Date: 20160309
  Transmission Date: 20160526
  Serious: Yes (Other)
  Sender: FDA-Public Use
  Company Number: None

PATIENT
  Age: 43 Year
  Sex: Female
  Weight: 61.24 kg

DRUGS (4)
  1. ACEBUTOLOL 200 MG MILAN [Suspect]
     Active Substance: ACEBUTOLOL
     Indication: EXTRASYSTOLES
     Route: 048
     Dates: start: 20160111, end: 20160304
  2. ASA [Concomitant]
     Active Substance: ASPIRIN
  3. CRESTOR [Concomitant]
     Active Substance: ROSUVASTATIN CALCIUM
  4. TRAMADOL. [Concomitant]
     Active Substance: TRAMADOL

REACTIONS (3)
  - Vision blurred [None]
  - Activities of daily living impaired [None]
  - Dizziness [None]

NARRATIVE: CASE EVENT DATE: 20160222
